FAERS Safety Report 20215231 (Version 3)
Quarter: 2023Q2

REPORT INFORMATION
  Report Type: Spontaneous
  Country: FR (occurrence: FR)
  Receive Date: 20211222
  Receipt Date: 20230523
  Transmission Date: 20230722
  Serious: Yes (Congenital Anomaly)
  Sender: FDA-Public Use
  Company Number: None

PATIENT
  Age: 4 Year
  Sex: Female

DRUGS (10)
  1. PREZISTA [Suspect]
     Active Substance: DARUNAVIR ETHANOLATE
     Indication: HIV infection
     Route: 064
     Dates: start: 20170327, end: 20170829
  2. PREZISTA [Suspect]
     Active Substance: DARUNAVIR ETHANOLATE
     Indication: Maternal exposure timing unspecified
     Route: 064
  3. EMTRICITABINE\RILPIVIRINE\TENOFOVIR DISOPROXIL FUMARATE [Suspect]
     Active Substance: EMTRICITABINE\RILPIVIRINE\TENOFOVIR DISOPROXIL FUMARATE
     Indication: HIV infection
     Route: 064
     Dates: start: 20131114, end: 20170327
  4. EMTRICITABINE\RILPIVIRINE\TENOFOVIR DISOPROXIL FUMARATE [Suspect]
     Active Substance: EMTRICITABINE\RILPIVIRINE\TENOFOVIR DISOPROXIL FUMARATE
     Indication: Maternal exposure timing unspecified
     Route: 064
  5. NORVIR [Suspect]
     Active Substance: RITONAVIR
     Indication: HIV infection
     Route: 064
     Dates: start: 20170327, end: 20170829
  6. NORVIR [Suspect]
     Active Substance: RITONAVIR
     Indication: Maternal exposure timing unspecified
     Route: 064
  7. RETROVIR [Suspect]
     Active Substance: ZIDOVUDINE
     Indication: Prophylaxis against HIV infection
     Dosage: 0.6 ML*2
     Route: 064
     Dates: start: 20170829, end: 201709
  8. RETROVIR [Suspect]
     Active Substance: ZIDOVUDINE
     Indication: Maternal exposure timing unspecified
     Route: 064
  9. TRUVADA [Suspect]
     Active Substance: EMTRICITABINE\TENOFOVIR DISOPROXIL FUMARATE
     Indication: HIV infection
     Route: 064
     Dates: start: 20170327, end: 20170829
  10. TRUVADA [Suspect]
     Active Substance: EMTRICITABINE\TENOFOVIR DISOPROXIL FUMARATE
     Indication: Maternal exposure timing unspecified
     Route: 064

REACTIONS (3)
  - Autism spectrum disorder [Not Recovered/Not Resolved]
  - Foetal exposure during pregnancy [Recovered/Resolved]
  - Foetal exposure during pregnancy [Unknown]

NARRATIVE: CASE EVENT DATE: 20210101
